FAERS Safety Report 15570660 (Version 1)
Quarter: 2018Q4

REPORT INFORMATION
  Report Type: Spontaneous
  Country: US (occurrence: US)
  Receive Date: 20181025
  Receipt Date: 20181025
  Transmission Date: 20190205
  Serious: No
  Sender: FDA-Public Use
  Company Number: None

PATIENT
  Sex: Female

DRUGS (2)
  1. IBRANCE [Suspect]
     Active Substance: PALBOCICLIB
     Indication: BREAST CANCER FEMALE
     Dosage: 125MG DAILY X 21 DAY/7 DAY OFF PO?
     Route: 048
     Dates: start: 20180216
  2. IBRANCE [Suspect]
     Active Substance: PALBOCICLIB
     Indication: METASTASIS

REACTIONS (1)
  - Back pain [None]
